FAERS Safety Report 11649205 (Version 1)
Quarter: 2015Q4

REPORT INFORMATION
  Report Type: Spontaneous
  Country: LV (occurrence: LV)
  Receive Date: 20151021
  Receipt Date: 20151021
  Transmission Date: 20160304
  Serious: Yes (Other)
  Sender: FDA-Public Use
  Company Number: LV-PFIZER INC-2015351260

PATIENT
  Age: 61 Year
  Sex: Male
  Weight: 95 kg

DRUGS (2)
  1. VIGANTOL /00318501/ [Concomitant]
     Indication: VITAMIN D DEFICIENCY
     Dosage: 1 GTT, 1X/DAY
     Route: 048
     Dates: start: 20150401
  2. SORTIS [Suspect]
     Active Substance: ATORVASTATIN
     Indication: DYSLIPIDAEMIA
     Dosage: 10 MG 1X/DAY
     Route: 048
     Dates: start: 20150524, end: 20150702

REACTIONS (4)
  - Asthenia [Recovering/Resolving]
  - Paraesthesia [Recovering/Resolving]
  - Muscle twitching [Recovering/Resolving]
  - Hypoaesthesia [Recovering/Resolving]

NARRATIVE: CASE EVENT DATE: 20150702
